FAERS Safety Report 17999453 (Version 1)
Quarter: 2020Q3

REPORT INFORMATION
  Report Type: Spontaneous
  Country: US (occurrence: US)
  Receive Date: 20200708
  Receipt Date: 20200708
  Transmission Date: 20201103
  Serious: Yes (Life-Threatening, Hospitalization)
  Sender: FDA-Public Use
  Company Number: None

PATIENT
  Age: 73 Year
  Sex: Male

DRUGS (1)
  1. WARFARIN (WARFARIN NA (EXELAN) 5MG TAB) [Suspect]
     Active Substance: WARFARIN SODIUM
     Indication: ATRIAL FIBRILLATION
     Route: 048
     Dates: start: 20200301, end: 20200626

REACTIONS (8)
  - Fatigue [None]
  - Malaise [None]
  - Gastric xanthoma [None]
  - Gastrointestinal haemorrhage [None]
  - Large intestine polyp [None]
  - Anaemia [None]
  - Diverticulum intestinal [None]
  - Lipoma [None]

NARRATIVE: CASE EVENT DATE: 20200626
